FAERS Safety Report 18259022 (Version 1)
Quarter: 2020Q3

REPORT INFORMATION
  Report Type: Report from Study
  Country: CA (occurrence: CA)
  Receive Date: 20200911
  Receipt Date: 20200911
  Transmission Date: 20201103
  Serious: Yes (Other)
  Sender: FDA-Public Use
  Company Number: CA-JNJFOC-20200321152

PATIENT
  Age: 14 Year
  Sex: Female
  Weight: 39.4 kg

DRUGS (2)
  1. REMICADE [Suspect]
     Active Substance: INFLIXIMAB
     Indication: CROHN^S DISEASE
     Dosage: THE PATIENT RECEIVED 6 TH 400 MILLIGRAM INFUSION ON 28?MAY?2020.
     Route: 042
     Dates: start: 20191206
  2. REMICADE [Suspect]
     Active Substance: INFLIXIMAB
     Dosage: ON 28?MAY?2020, THE PATIENT RECEIVED 6TH 400 MG INFLIXIMAB INFUSION.
     Route: 042
     Dates: start: 20200430

REACTIONS (4)
  - Crohn^s disease [Unknown]
  - Off label use [Unknown]
  - Therapeutic product effect decreased [Unknown]
  - Product use issue [Unknown]

NARRATIVE: CASE EVENT DATE: 20200430
